FAERS Safety Report 6672909-X (Version None)
Quarter: 2010Q2

REPORT INFORMATION
  Report Type: 
  Country: None (occurrence: None)
  Receive Date: 20100408
  Receipt Date: 20100330
  Transmission Date: 20101027
  Serious: Yes (Hospitalization, Other)
  Sender: FDA-Public Use
  Company Number: PHHY2010MX19887

PATIENT
  Sex: Female

DRUGS (3)
  1. TRILEPTAL [Suspect]
     Indication: EPILEPSY
     Dosage: 1 DF, QD
     Route: 048
     Dates: start: 20100324
  2. EXFORGE [Suspect]
     Indication: HYPERTENSION
     Dosage: 0.5 DF
  3. EXELON [Suspect]
     Indication: DEMENTIA ALZHEIMER'S TYPE

REACTIONS (6)
  - BLOOD PRESSURE INCREASED [None]
  - FALL [None]
  - HIP FRACTURE [None]
  - HIP SURGERY [None]
  - LUNG DISORDER [None]
  - WOUND INFECTION [None]
